FAERS Safety Report 4473736-4 (Version None)
Quarter: 2004Q3

REPORT INFORMATION
  Report Type: 
  Country: None (occurrence: None)
  Receive Date: 20040917
  Receipt Date: 20040607
  Transmission Date: 20050211
  Serious: Yes (Hospitalization)
  Sender: FDA-Public Use
  Company Number: US-JNJFOC-20040601913

PATIENT
  Age: 36 Year
  Sex: Female
  Weight: 158.759 kg

DRUGS (7)
  1. ORTHO EVRA [Suspect]
     Indication: MENSTRUAL DISORDER
     Dosage: 1 DOSE(S), 3 IN 4 WEEK, TRANSDERMAL
     Route: 062
     Dates: start: 20040314, end: 20040404
  2. PREVICIDE (LANSOPRAZOLE) UNSPECIFIED [Concomitant]
  3. CALRINEX (DESLORATADINE) UNSPECIFIED [Concomitant]
  4. FLONASE (FLUTICASONE) UNSPECIFIED [Concomitant]
  5. VIOX (ROFECOXIB) UNSPECIFIED [Concomitant]
  6. PAXIL (PAROXETINE HYDROCHLORIDE) UNSPECIFIED [Concomitant]
  7. ANTIVERT (ANCOVERT) UNSPECIFIED [Concomitant]

REACTIONS (3)
  - CARDIAC ENZYMES INCREASED [None]
  - INTRACARDIAC THROMBUS [None]
  - PULMONARY EMBOLISM [None]
